FAERS Safety Report 23461262 (Version 27)
Quarter: 2025Q4

REPORT INFORMATION
  Report Type: Spontaneous
  Country: IL (occurrence: IL)
  Receive Date: 20240131
  Receipt Date: 20251024
  Transmission Date: 20260117
  Serious: Yes (Other)
  Sender: PFIZER
  Company Number: IL-PFIZER INC-2019466093

PATIENT
  Age: 57 Year
  Sex: Male

DRUGS (31)
  1. ELELYSO [Suspect]
     Active Substance: TALIGLUCERASE ALFA
     Indication: Gaucher^s disease
     Dosage: 2000 IU; PER INFUSION TWICE A MONTH
     Route: 042
     Dates: start: 20190725
  2. ELELYSO [Suspect]
     Active Substance: TALIGLUCERASE ALFA
     Dosage: 1000 IU, EVERY 3 WEEKS
     Route: 042
  3. ELELYSO [Suspect]
     Active Substance: TALIGLUCERASE ALFA
     Dosage: 1000 IU; PER INFUSION TWICE A MONTH
     Route: 042
  4. ELELYSO [Suspect]
     Active Substance: TALIGLUCERASE ALFA
     Dosage: 5 VIALS EVERY OTHER WEEK
     Route: 042
  5. ELELYSO [Suspect]
     Active Substance: TALIGLUCERASE ALFA
     Dosage: 5 VIALS FOR A TREATMENT TWICE A MONTH
     Route: 042
  6. ELELYSO [Suspect]
     Active Substance: TALIGLUCERASE ALFA
     Dosage: 5 VIALS FOR A TREATMENT TWICE A MONTH
     Route: 042
  7. ELELYSO [Suspect]
     Active Substance: TALIGLUCERASE ALFA
     Dosage: UNK
     Route: 042
     Dates: end: 20220809
  8. ELELYSO [Suspect]
     Active Substance: TALIGLUCERASE ALFA
     Dosage: 10 VIALS
     Route: 042
  9. ELELYSO [Suspect]
     Active Substance: TALIGLUCERASE ALFA
     Dosage: 10 VIALS
     Route: 042
  10. ELELYSO [Suspect]
     Active Substance: TALIGLUCERASE ALFA
     Dosage: 10 VIALS
     Route: 042
  11. ELELYSO [Suspect]
     Active Substance: TALIGLUCERASE ALFA
     Dosage: 10 VIALS
     Route: 042
  12. ELELYSO [Suspect]
     Active Substance: TALIGLUCERASE ALFA
     Dosage: 10 VIALS
     Route: 042
  13. ELELYSO [Suspect]
     Active Substance: TALIGLUCERASE ALFA
     Dosage: 10 VIALS
     Route: 042
  14. ELELYSO [Suspect]
     Active Substance: TALIGLUCERASE ALFA
     Dosage: 2000 IU, TWICE A MONTH
     Route: 042
     Dates: start: 20231207
  15. ELELYSO [Suspect]
     Active Substance: TALIGLUCERASE ALFA
     Dosage: 2000 IU. TWICE A MONTH
     Route: 042
     Dates: start: 20231217
  16. ELELYSO [Suspect]
     Active Substance: TALIGLUCERASE ALFA
     Dosage: 2000 IU TWICE A MONTH
     Route: 042
     Dates: start: 20240212
  17. ELELYSO [Suspect]
     Active Substance: TALIGLUCERASE ALFA
     Dosage: 10 VIALS
     Route: 042
     Dates: start: 20240418
  18. ELELYSO [Suspect]
     Active Substance: TALIGLUCERASE ALFA
     Dosage: UNK
  19. ELELYSO [Suspect]
     Active Substance: TALIGLUCERASE ALFA
     Dosage: 2000 IU, TWICE A MONTH
     Route: 042
     Dates: start: 20240721
  20. ELELYSO [Suspect]
     Active Substance: TALIGLUCERASE ALFA
     Dosage: 2000 IU TWICE A MONTH
     Route: 042
     Dates: start: 20241013
  21. ELELYSO [Suspect]
     Active Substance: TALIGLUCERASE ALFA
     Dosage: 2000 IU TWICE A MONTH
     Route: 042
     Dates: start: 20241209, end: 20241209
  22. ELELYSO [Suspect]
     Active Substance: TALIGLUCERASE ALFA
     Dosage: 2000 IU TWICE A MONTH
     Route: 042
     Dates: start: 20241229
  23. ELELYSO [Suspect]
     Active Substance: TALIGLUCERASE ALFA
     Dosage: 2000 IU TWICE A MONTH
     Route: 042
     Dates: start: 20250126
  24. ELELYSO [Suspect]
     Active Substance: TALIGLUCERASE ALFA
     Dosage: 2000 IU TWICE A MONTH
     Route: 042
     Dates: start: 20250420
  25. ELELYSO [Suspect]
     Active Substance: TALIGLUCERASE ALFA
     Dosage: 2000 IU TWICE A MONTH
     Route: 042
     Dates: start: 20250525
  26. ELELYSO [Suspect]
     Active Substance: TALIGLUCERASE ALFA
     Dosage: 2000 IU TWICE A MONTH
     Route: 042
     Dates: start: 20250608
  27. ELELYSO [Suspect]
     Active Substance: TALIGLUCERASE ALFA
     Dosage: 2000 IU TWICE A MONTH
     Route: 042
     Dates: start: 20250629
  28. ELELYSO [Suspect]
     Active Substance: TALIGLUCERASE ALFA
     Dosage: 2000 IU TWICE A MONTH
     Route: 042
     Dates: start: 20250727
  29. ELELYSO [Suspect]
     Active Substance: TALIGLUCERASE ALFA
     Dosage: 2000 IU TWICE A MONTH
     Route: 042
     Dates: start: 20250907
  30. ELELYSO [Suspect]
     Active Substance: TALIGLUCERASE ALFA
     Dosage: 2000 IU  TWICE A MONTH
     Route: 042
     Dates: start: 20250928
  31. ELELYSO [Suspect]
     Active Substance: TALIGLUCERASE ALFA
     Dosage: 2000 IU TWICE A MONTH
     Route: 042
     Dates: start: 20251020

REACTIONS (6)
  - Shoulder fracture [Unknown]
  - Back injury [Recovering/Resolving]
  - Malaise [Unknown]
  - Product dose omission issue [Unknown]
  - Off label use [Unknown]
  - Intentional product use issue [Unknown]

NARRATIVE: CASE EVENT DATE: 20200726
